FAERS Safety Report 6321457-5 (Version None)
Quarter: 2009Q3

REPORT INFORMATION
  Report Type: 
  Country: None (occurrence: None)
  Receive Date: 20090822
  Receipt Date: 20090202
  Transmission Date: 20100115
  Serious: No
  Sender: FDA-Public Use
  Company Number: US-ABBOTT-09P-163-0501486-00

PATIENT
  Sex: Female
  Weight: 54.48 kg

DRUGS (4)
  1. NIASPAN [Suspect]
     Indication: HIGH DENSITY LIPOPROTEIN INCREASED
     Route: 048
     Dates: start: 20090129
  2. CRESTOR [Concomitant]
     Indication: HIGH DENSITY LIPOPROTEIN INCREASED
     Dates: start: 20081229
  3. METOPROLOL [Concomitant]
     Indication: HYPERTENSION
     Route: 048
  4. MICARDIS [Concomitant]
     Indication: HYPERTENSION
     Route: 048

REACTIONS (3)
  - PARAESTHESIA [None]
  - PRURITUS [None]
  - RASH ERYTHEMATOUS [None]
